FAERS Safety Report 4567388-2 (Version None)
Quarter: 2005Q1

REPORT INFORMATION
  Report Type: 
  Country: None (occurrence: None)
  Receive Date: 20050127
  Receipt Date: 20050113
  Transmission Date: 20050727
  Serious: Yes (Death)
  Sender: FDA-Public Use
  Company Number: 2005-UK-00058UK

PATIENT
  Age: 45 Year
  Sex: Male

DRUGS (5)
  1. MOBIC [Suspect]
     Indication: OSTEOARTHRITIS
     Dosage: 15 MG, PO
     Route: 048
     Dates: start: 20040810
  2. CELEBREX [Suspect]
     Indication: OSTEOARTHRITIS
     Dosage: 200 MG (100 MG, TWICE DAILY), PO
     Route: 048
     Dates: start: 20041102
  3. NAPROXEN [Concomitant]
  4. SYNVISC (HYALURONATE SODIUM) [Concomitant]
  5. CAPSAICIN (CAPSAICIN) [Concomitant]

REACTIONS (1)
  - MYOCARDIAL INFARCTION [None]
